FAERS Safety Report 16131911 (Version 1)
Quarter: 2019Q1

REPORT INFORMATION
  Report Type: Spontaneous
  Country: SE (occurrence: SE)
  Receive Date: 20190329
  Receipt Date: 20190329
  Transmission Date: 20190418
  Serious: Yes (Hospitalization)
  Sender: FDA-Public Use
  Company Number: SE-ROCHE-2291659

PATIENT
  Age: 61 Year
  Sex: Male

DRUGS (2)
  1. IMMUNOGLOBULIN G [Suspect]
     Active Substance: HUMAN IMMUNOGLOBULIN G
     Indication: DEMYELINATING POLYNEUROPATHY
     Dosage: UNK
     Route: 065
     Dates: start: 201209
  2. RITUXIMAB. [Suspect]
     Active Substance: RITUXIMAB
     Indication: DEMYELINATING POLYNEUROPATHY
     Dosage: UNK
     Route: 065
     Dates: start: 201209

REACTIONS (3)
  - Drug resistance [Unknown]
  - Bronchopulmonary aspergillosis [Unknown]
  - Pancreatitis [Unknown]
